FAERS Safety Report 5018105-3 (Version None)
Quarter: 2006Q2

REPORT INFORMATION
  Report Type: 
  Country: None (occurrence: None)
  Receive Date: 20060530
  Receipt Date: 20060428
  Transmission Date: 20061013
  Serious: Yes (Hospitalization)
  Sender: FDA-Public Use
  Company Number: 2006059058

PATIENT
  Age: 47 Year
  Sex: Male
  Weight: 127.0072 kg

DRUGS (1)
  1. CELEBREX [Suspect]
     Indication: PAIN
     Dosage: 400 MG (200 MG, 2 IN 1 D)
     Dates: start: 20020101

REACTIONS (8)
  - ANGINA PECTORIS [None]
  - BLOOD CHOLESTEROL INCREASED [None]
  - CARDIOMYOPATHY [None]
  - CEREBROVASCULAR DISORDER [None]
  - DIABETES MELLITUS [None]
  - HEART RATE ABNORMAL [None]
  - HYPERTENSION [None]
  - RENAL DISORDER [None]
